FAERS Safety Report 16671421 (Version 1)
Quarter: 2019Q3

REPORT INFORMATION
  Report Type: Spontaneous
  Country: US (occurrence: US)
  Receive Date: 20190806
  Receipt Date: 20190806
  Transmission Date: 20191004
  Serious: No
  Sender: FDA-Public Use
  Company Number: US-GLAXOSMITHKLINE-US2019137583

PATIENT
  Sex: Male

DRUGS (1)
  1. COREG CR [Suspect]
     Active Substance: CARVEDILOL PHOSPHATE
     Indication: BLOOD PRESSURE ABNORMAL
     Dosage: 20 MG, BID
     Route: 048

REACTIONS (3)
  - Overdose [Unknown]
  - Blood pressure inadequately controlled [Unknown]
  - Drug ineffective [Unknown]
